FAERS Safety Report 18059609 (Version 5)
Quarter: 2020Q4

REPORT INFORMATION
  Report Type: Report from Study
  Country: US (occurrence: US)
  Receive Date: 20200723
  Receipt Date: 20201021
  Transmission Date: 20210113
  Serious: Yes (Other)
  Sender: FDA-Public Use
  Company Number: NVSC2020US198650

PATIENT
  Sex: Female

DRUGS (2)
  1. GLATOPA [Suspect]
     Active Substance: GLATIRAMER ACETATE
     Dosage: UNK UNK, QD
     Route: 065
  2. GLATOPA [Suspect]
     Active Substance: GLATIRAMER ACETATE
     Indication: MULTIPLE SCLEROSIS
     Dosage: 40 MG, TIW (STARTED TAKING SINCE MAY)
     Route: 058

REACTIONS (5)
  - Gait disturbance [Unknown]
  - Pruritus [Unknown]
  - Rash [Unknown]
  - Hyperpyrexia [Unknown]
  - Pain [Unknown]
